FAERS Safety Report 4745622-3 (Version None)
Quarter: 2005Q3

REPORT INFORMATION
  Report Type: 
  Country: None (occurrence: None)
  Receive Date: 20050815
  Receipt Date: 20050727
  Transmission Date: 20060218
  Serious: Yes (Hospitalization)
  Sender: FDA-Public Use
  Company Number: 2005-01617

PATIENT
  Age: 67 Year
  Sex: Female
  Weight: 64 kg

DRUGS (19)
  1. VELCADE [Suspect]
     Indication: MULTIPLE MYELOMA
     Dosage: 1.60 MG, INTRAVENOUS
     Route: 042
     Dates: start: 20050113
  2. TROPISETRON HYDROCHLORIDE (TROPISETRON HYDROCHLORIDE) [Concomitant]
  3. IBANDRONIC ACID (IBANDRONIC ACID) [Concomitant]
  4. ANTI-PHOSPHAT (ALUMINIUM HYDROXIDE GEL) [Concomitant]
  5. METOPROLOL TARTRATE [Concomitant]
  6. RAMIPRIL [Concomitant]
  7. URAPIDIL (URAPIDIL) [Concomitant]
  8. SODIUM CARBONATE (SODIUM CARBONATE) [Concomitant]
  9. FOLIC ACID [Concomitant]
  10. BIOTIN [Concomitant]
  11. ASCORBIC ACID [Concomitant]
  12. THIAMINE HCL [Concomitant]
  13. NICOTINAMIDE [Concomitant]
  14. CALCIUM PANTOTHENATE (CALCIUM PENTOTHENATE) [Concomitant]
  15. ALFACALCIDOL (ALFACALCIDOL) [Concomitant]
  16. ACETYLCYSTEINE [Concomitant]
  17. INDOMETHACIN [Concomitant]
  18. BUPRENORPHINE (BUPRENORPHINE) [Concomitant]
  19. EPOETIN BETA (EPOETIN BETA) [Concomitant]

REACTIONS (5)
  - CERVICAL MYELOPATHY [None]
  - FALL [None]
  - QUADRIPARESIS [None]
  - SPINAL COLUMN STENOSIS [None]
  - THROMBOCYTOPENIA [None]
